FAERS Safety Report 8321038-8 (Version None)
Quarter: 2012Q2

REPORT INFORMATION
  Report Type: 
  Country: None (occurrence: None)
  Receive Date: 20120430
  Receipt Date: 20120420
  Transmission Date: 20120825
  Serious: No
  Sender: FDA-Public Use
  Company Number: US-JNJFOC-20120410351

PATIENT
  Age: 42 Year
  Sex: Male

DRUGS (4)
  1. KLONOPIN [Concomitant]
     Route: 048
  2. CELEXA [Concomitant]
     Route: 048
  3. SIMVASTATIN [Concomitant]
     Route: 048
  4. INVEGA SUSTENNA [Suspect]
     Indication: SCHIZOPHRENIA
     Route: 030
     Dates: start: 20120201

REACTIONS (2)
  - SYRINGE ISSUE [None]
  - ACCIDENTAL EXPOSURE [None]
